FAERS Safety Report 6182017-2 (Version None)
Quarter: 2009Q2

REPORT INFORMATION
  Report Type: 
  Country: None (occurrence: None)
  Receive Date: 20090505
  Receipt Date: 20090425
  Transmission Date: 20091009
  Serious: Yes (Other)
  Sender: FDA-Public Use
  Company Number: 2009US001305

PATIENT

DRUGS (2)
  1. AMEVIVE [Suspect]
     Indication: PSORIASIS
     Dosage: 15 MG; 30 MG; WEEKLY, INTRAMUSCULAR
     Route: 030
  2. AMEVIVE [Suspect]
     Indication: PSORIASIS
     Dosage: 15 MG; 30 MG; WEEKLY, INTRAMUSCULAR
     Route: 030

REACTIONS (2)
  - INFECTION [None]
  - SINUSITIS [None]
